FAERS Safety Report 8600921-X (Version None)
Quarter: 2012Q3

REPORT INFORMATION
  Report Type: 
  Country: None (occurrence: None)
  Receive Date: 20120817
  Receipt Date: 20120808
  Transmission Date: 20120928
  Serious: Yes (Hospitalization, Other)
  Sender: FDA-Public Use
  Company Number: SE-SANOFI-AVENTIS-2012SA056691

PATIENT
  Age: 61 Year
  Sex: Male

DRUGS (9)
  1. METOPROLOL TARTRATE [Concomitant]
  2. COCILLANA-ETYFIN [Concomitant]
  3. DRONEDARONE HCL [Suspect]
     Indication: ATRIAL FIBRILLATION
     Route: 048
     Dates: end: 20120602
  4. SIMVASTATIN [Concomitant]
  5. KALCIPOS-D [Concomitant]
  6. BUDESONIDE/FORMOTEROL [Concomitant]
  7. BRICANYL [Concomitant]
  8. SUMATRIPTAN [Concomitant]
  9. ALENDRONATE SODIUM [Concomitant]

REACTIONS (3)
  - INTERSTITIAL LUNG DISEASE [None]
  - ALVEOLITIS [None]
  - ATRIAL FIBRILLATION [None]
